FAERS Safety Report 17136506 (Version 3)
Quarter: 2019Q4

REPORT INFORMATION
  Report Type: Spontaneous
  Country: US (occurrence: US)
  Receive Date: 20191210
  Receipt Date: 20191218
  Transmission Date: 20200122
  Serious: No
  Sender: FDA-Public Use
  Company Number: US-SA-2019SA140007

PATIENT
  Age: 73 Year
  Sex: Male

DRUGS (1)
  1. LANTUS SOLOSTAR [Suspect]
     Active Substance: INSULIN GLARGINE
     Indication: TYPE 1 DIABETES MELLITUS
     Dosage: 4 U, BID
     Route: 065
     Dates: start: 201903

REACTIONS (6)
  - Product dose omission [Unknown]
  - Injection site haemorrhage [Unknown]
  - Inappropriate schedule of product administration [Unknown]
  - Blood glucose increased [Unknown]
  - Device operational issue [Unknown]
  - Injection site bruising [Unknown]
